FAERS Safety Report 7823341-4 (Version None)
Quarter: 2011Q4

REPORT INFORMATION
  Report Type: 
  Country: None (occurrence: None)
  Receive Date: 20111019
  Receipt Date: 20111008
  Transmission Date: 20120403
  Serious: Yes (Other)
  Sender: FDA-Public Use
  Company Number: US-PAR PHARMACEUTICAL, INC-2011SCPR003287

PATIENT

DRUGS (4)
  1. TRAMADOL HCL [Suspect]
     Indication: BACK PAIN
     Dosage: 1 TABLET EVERY 4-6 HOURS AS NEEDED
     Route: 065
  2. TRAMADOL HCL [Interacting]
     Dosage: ONLY AT NIGHT
  3. ALCOHOL [Interacting]
     Indication: PRODUCT USED FOR UNKNOWN INDICATION
     Dosage: UNK, UNKNOWN
     Route: 065
  4. SPIRONOLACTONE [Concomitant]
     Indication: ALCOHOLIC LIVER DISEASE
     Dosage: 1 TABLET, DAILY
     Route: 065

REACTIONS (2)
  - LOSS OF CONSCIOUSNESS [None]
  - ALCOHOL INTERACTION [None]
